FAERS Safety Report 18024556 (Version 1)
Quarter: 2020Q3

REPORT INFORMATION
  Report Type: Spontaneous
  Country: US (occurrence: US)
  Receive Date: 20200714
  Receipt Date: 20200714
  Transmission Date: 20201103
  Serious: No
  Sender: FDA-Public Use
  Company Number: None

PATIENT
  Sex: Male

DRUGS (1)
  1. LORAZEPAM. [Suspect]
     Active Substance: LORAZEPAM
     Route: 048
     Dates: end: 20190826

REACTIONS (8)
  - Joint injury [None]
  - Confusional state [None]
  - Fall [None]
  - Sedation [None]
  - Ataxia [None]
  - Delirium [None]
  - Contusion [None]
  - Epistaxis [None]
